FAERS Safety Report 9287526 (Version 1)
Quarter: 2013Q2

REPORT INFORMATION
  Report Type: Spontaneous
  Country: US (occurrence: US)
  Receive Date: 20130514
  Receipt Date: 20130514
  Transmission Date: 20140414
  Serious: No
  Sender: FDA-Public Use
  Company Number: US-BIOGENIDEC-2013BI042130

PATIENT
  Sex: Male

DRUGS (2)
  1. TYSABRI [Suspect]
     Indication: MULTIPLE SCLEROSIS
     Route: 042
     Dates: start: 20091106, end: 20110405
  2. TYSABRI [Suspect]
     Indication: MULTIPLE SCLEROSIS
     Route: 042
     Dates: start: 20121116

REACTIONS (8)
  - Myalgia [Unknown]
  - Pain [Unknown]
  - Hypersomnia [Unknown]
  - Hypoaesthesia [Unknown]
  - Vision blurred [Unknown]
  - Coordination abnormal [Unknown]
  - General symptom [Unknown]
  - Fatigue [Unknown]
